FAERS Safety Report 7967117-6 (Version None)
Quarter: 2011Q4

REPORT INFORMATION
  Report Type: 
  Country: None (occurrence: None)
  Receive Date: 20111208
  Receipt Date: 20111208
  Transmission Date: 20120403
  Serious: Yes (Hospitalization)
  Sender: FDA-Public Use
  Company Number: None

PATIENT
  Age: 67 Year
  Sex: Female
  Weight: 60.782 kg

DRUGS (1)
  1. EXEMESTANE [Suspect]
     Indication: BREAST CANCER
     Dosage: 5MG 1 DAILY
     Dates: start: 20111113, end: 20111114

REACTIONS (7)
  - PHARYNGEAL OEDEMA [None]
  - LOCAL SWELLING [None]
  - SWELLING FACE [None]
  - OEDEMA PERIPHERAL [None]
  - MYALGIA [None]
  - ARTHRALGIA [None]
  - GAIT DISTURBANCE [None]
